FAERS Safety Report 4417435-3 (Version None)
Quarter: 2004Q3

REPORT INFORMATION
  Report Type: 
  Country: None (occurrence: None)
  Receive Date: 20040803
  Receipt Date: 20040721
  Transmission Date: 20050211
  Serious: Yes (Other)
  Sender: FDA-Public Use
  Company Number: 2004049595

PATIENT
  Sex: Male
  Weight: 83.0083 kg

DRUGS (8)
  1. NEURONTIN [Suspect]
     Indication: NEUROPATHIC PAIN
     Dosage: 1200 MG (600 MG, 2 IN 1 D), ORAL
     Route: 048
  2. ATENOLOL [Concomitant]
  3. ISOSORBIDE (ISOSORBIDE) [Concomitant]
  4. ASPIRIN [Concomitant]
  5. TOCOPHEROL CONCENTRATE CAP [Concomitant]
  6. PYRIDOXINE HCL [Concomitant]
  7. CYANOCOBALAMIN (CYANOCOBALAMIN) [Concomitant]
  8. INSULIN [Concomitant]

REACTIONS (8)
  - CARCINOMA [None]
  - CARDIAC DISORDER [None]
  - CORONARY ARTERY OCCLUSION [None]
  - DIABETES MELLITUS [None]
  - DRUG INEFFECTIVE [None]
  - LYMPHOMA [None]
  - MYOCARDIAL INFARCTION [None]
  - NEUROPATHY [None]
